FAERS Safety Report 23027495 (Version 1)
Quarter: 2023Q4

REPORT INFORMATION
  Report Type: Other
  Country: None (occurrence: JP)
  Receive Date: 20231004
  Receipt Date: 20231004
  Transmission Date: 20240110
  Serious: Yes (Hospitalization)
  Sender: FDA-Public Use
  Company Number: JP-ALSI-2023000195

PATIENT
  Age: 69 Year
  Sex: Male
  Weight: 65 kg

DRUGS (1)
  1. OXYGEN [Suspect]
     Active Substance: OXYGEN
     Indication: Tachypnoea
     Route: 055

REACTIONS (3)
  - Subcutaneous emphysema [Recovered/Resolved]
  - Pulmonary air leakage [Recovered/Resolved]
  - Condition aggravated [Recovered/Resolved]
